FAERS Safety Report 9197851 (Version 1)
Quarter: 2013Q1

REPORT INFORMATION
  Report Type: Spontaneous
  Country: KR (occurrence: KR)
  Receive Date: 20130328
  Receipt Date: 20130328
  Transmission Date: 20140127
  Serious: Yes (Other)
  Sender: FDA-Public Use
  Company Number: KR-COVIDIEN/TYCO HEALTHCARE/MALLINCKRODT-T201301364

PATIENT
  Sex: Female

DRUGS (1)
  1. SODIUM IODIDE (I 131) [Suspect]
     Indication: THYROID CANCER
     Dosage: 150 MCI, SINGLE
     Route: 065

REACTIONS (1)
  - Acute myeloid leukaemia [Unknown]
